FAERS Safety Report 8612129-2 (Version None)
Quarter: 2012Q3

REPORT INFORMATION
  Report Type: 
  Country: None (occurrence: None)
  Receive Date: 20120822
  Receipt Date: 20120820
  Transmission Date: 20120928
  Serious: Yes (Other)
  Sender: FDA-Public Use
  Company Number: US-PFIZER INC-2012203926

PATIENT
  Age: 38 Year
  Sex: Female
  Weight: 93.878 kg

DRUGS (2)
  1. CITALOPRAM [Concomitant]
     Dosage: UNK
  2. CHANTIX [Suspect]
     Indication: SMOKING CESSATION THERAPY
     Dosage: 0.5 MG, 1X/DAY
     Route: 048
     Dates: start: 20120130, end: 20120401

REACTIONS (1)
  - GASTRIC DISORDER [None]
